FAERS Safety Report 9135852 (Version 1)
Quarter: 2013Q1

REPORT INFORMATION
  Report Type: Report from Study
  Country: US (occurrence: US)
  Receive Date: 20130304
  Receipt Date: 20130304
  Transmission Date: 20140127
  Serious: No
  Sender: FDA-Public Use
  Company Number: US-ABBOTT-12P-163-0920370-00

PATIENT
  Age: 50 Year
  Sex: Male
  Weight: 157.99 kg

DRUGS (6)
  1. ANDROGEL 1% [Suspect]
     Indication: BLOOD TESTOSTERONE DECREASED
     Route: 061
     Dates: start: 2010, end: 2011
  2. ANDROGEL 1% [Suspect]
     Dates: start: 201202
  3. ANDROGEL 1% [Suspect]
  4. BUPROPION [Suspect]
     Indication: DEPRESSION
     Dates: start: 2010
  5. ACTOS [Concomitant]
     Indication: DIABETES MELLITUS
  6. JANUVIA [Concomitant]
     Indication: DIABETES MELLITUS

REACTIONS (9)
  - Pollakiuria [Not Recovered/Not Resolved]
  - Blood testosterone decreased [Not Recovered/Not Resolved]
  - Dysuria [Not Recovered/Not Resolved]
  - Therapeutic response unexpected [Not Recovered/Not Resolved]
  - Dysuria [Not Recovered/Not Resolved]
  - Energy increased [Not Recovered/Not Resolved]
  - Prostatic specific antigen increased [Recovered/Resolved]
  - Muscle spasms [Not Recovered/Not Resolved]
  - Blood glucose abnormal [Unknown]
